FAERS Safety Report 15720651 (Version 1)
Quarter: 2018Q4

REPORT INFORMATION
  Report Type: Report from Study
  Country: US (occurrence: US)
  Receive Date: 20181213
  Receipt Date: 20181213
  Transmission Date: 20190205
  Serious: Yes (Hospitalization, Other)
  Sender: FDA-Public Use
  Company Number: US-GILEAD-2018-0380133

PATIENT
  Age: 41 Year
  Sex: Male

DRUGS (13)
  1. MINOCYCLINE [Concomitant]
     Active Substance: MINOCYCLINE\MINOCYCLINE HYDROCHLORIDE
  2. TOBRAMYCIN. [Concomitant]
     Active Substance: TOBRAMYCIN
  3. SYMDEKO [Concomitant]
     Active Substance: IVACAFTOR\TEZACAFTOR
  4. AZTREONAM LYSINE [Suspect]
     Active Substance: AZTREONAM LYSINE
     Indication: CYSTIC FIBROSIS
     Dosage: 75 MG
     Route: 055
  5. INSULIN [Concomitant]
     Active Substance: INSULIN NOS
  6. SULFAMETHIZOL [Concomitant]
  7. PULMOZYME [Concomitant]
     Active Substance: DORNASE ALFA
  8. HYDROXYCHLOROQUINE [Concomitant]
     Active Substance: HYDROXYCHLOROQUINE
  9. HUMALOG [Concomitant]
     Active Substance: INSULIN LISPRO
  10. LINEZOLID. [Concomitant]
     Active Substance: LINEZOLID
  11. ZENPEP [Concomitant]
     Active Substance: PANCRELIPASE AMYLASE\PANCRELIPASE LIPASE\PANCRELIPASE PROTEASE
  12. ESCITALOPRAM [Concomitant]
     Active Substance: ESCITALOPRAM OXALATE
  13. FLUZONE QUADRIVALENT NOS [Concomitant]
     Active Substance: INFLUENZA A VIRUS A/CALIFORNIA/7/2009 X-179A (H1N1) ANTIGEN (FORMALDEHYDE INACTIVATED)\INFLUENZA A VIRUS A/TEXAS/50/2012 X-223A (H3N2) ANTIGEN (FORMALDEHYDE INACTIVATED)\INFLUENZA B VIRUS B/BRISBANE/60/2008 ANTIGEN (FORMALDEHYDE INACTIVATED)\INFLUENZA B VIRUS B/MASSACHUSETTS/2/2012 ANTIGEN (FORMALDE

REACTIONS (2)
  - Cystic fibrosis [Unknown]
  - Infection [Unknown]
